FAERS Safety Report 5894931-3 (Version None)
Quarter: 2008Q3

REPORT INFORMATION
  Report Type: 
  Country: None (occurrence: None)
  Receive Date: 20080924
  Receipt Date: 20080917
  Transmission Date: 20090109
  Serious: Yes (Other)
  Sender: FDA-Public Use
  Company Number: PHHY2008NZ17489

PATIENT
  Sex: Male

DRUGS (7)
  1. EXELON [Suspect]
     Indication: DEMENTIA
     Dosage: 1.5 MG, BID
     Dates: start: 20071101
  2. EXELON [Suspect]
     Dosage: TITRATED TO 3 MG IN THE MORNING AND 6 MG IN THE NITE
     Dates: start: 20080114, end: 20080207
  3. EXELON [Suspect]
     Dosage: 4.6 MG
  4. EXELON [Suspect]
     Dosage: 9.5 MG
     Route: 062
     Dates: start: 20080512, end: 20080517
  5. ASPIRIN [Concomitant]
     Indication: TRANSIENT ISCHAEMIC ATTACK
     Dosage: UNK
     Route: 048
  6. CETIRIZINE HCL [Concomitant]
     Route: 048
  7. RADIOTHERAPY [Concomitant]

REACTIONS (5)
  - ABDOMINAL PAIN [None]
  - COLONOSCOPY [None]
  - HAEMORRHOID OPERATION [None]
  - HAEMORRHOIDS [None]
  - RECTAL HAEMORRHAGE [None]
